FAERS Safety Report 5026293-8 (Version None)
Quarter: 2006Q2

REPORT INFORMATION
  Report Type: 
  Country: None (occurrence: None)
  Receive Date: 20060426
  Receipt Date: 20060123
  Transmission Date: 20061013
  Serious: Yes (Other)
  Sender: FDA-Public Use
  Company Number: 2006012171

PATIENT
  Age: 44 Year
  Sex: Female
  Weight: 60.3284 kg

DRUGS (17)
  1. LYRICA [Suspect]
     Indication: NEUROPATHY PERIPHERAL
     Dosage: 75 MG (75 MG,1 IN 1 D),ORAL
     Route: 048
     Dates: start: 20051101
  2. PREVACID [Concomitant]
  3. CYTOXAN [Concomitant]
  4. SYNTHROID [Concomitant]
  5. FOLIC ACID [Concomitant]
  6. PREDNISONE TAB [Concomitant]
  7. ZOCOR [Concomitant]
  8. ZOLOFT [Concomitant]
  9. BACTRIM [Concomitant]
  10. TOPAMAX [Concomitant]
  11. VITAMIN B COMPLEX CAP [Concomitant]
  12. XANAX [Concomitant]
  13. VALIUM [Concomitant]
  14. KADIAN [Concomitant]
  15. DURAGESIC-100 [Concomitant]
  16. ROXICODONE [Concomitant]
  17. NEURONTIN [Concomitant]

REACTIONS (3)
  - DRUG SCREEN FALSE POSITIVE [None]
  - WEGENER'S GRANULOMATOSIS [None]
  - WHITE BLOOD CELL COUNT DECREASED [None]
